FAERS Safety Report 19828671 (Version 1)
Quarter: 2021Q3

REPORT INFORMATION
  Report Type: Spontaneous
  Country: US (occurrence: US)
  Receive Date: 20210914
  Receipt Date: 20210914
  Transmission Date: 20211014
  Serious: No
  Sender: FDA-Public Use
  Company Number: US-GALDERMA-US2021016189

PATIENT

DRUGS (5)
  1. PROACTIV MD ADAPALENE ACNE TREATMENT [Suspect]
     Active Substance: ADAPALENE
     Indication: PRODUCT USED FOR UNKNOWN INDICATION
     Dosage: 1 DOSAGE FORM, QD, DAILY
     Route: 061
     Dates: start: 202105, end: 202106
  2. PROACTIV MD ULTRA GENTLE CLEANSER [Concomitant]
     Indication: PRODUCT USED FOR UNKNOWN INDICATION
     Dosage: 1 DOSAGE FORM, DAILY
     Route: 061
     Dates: start: 202105, end: 202106
  3. PROACTIV MD ULTRA HYDRATING MOISTURIZER [Concomitant]
     Indication: PRODUCT USED FOR UNKNOWN INDICATION
     Dosage: 1 DOSAGE FORM, QD, DAILY
     Route: 061
     Dates: start: 202105, end: 202106
  4. PROACTIV PORE PURIFYING NOSE STRIP [Concomitant]
     Indication: PRODUCT USED FOR UNKNOWN INDICATION
     Dosage: 1 DOSAGE FORM, QD, DAILY
     Route: 061
     Dates: start: 202105, end: 202106
  5. PROACTIV ACNE BODY WASH [Concomitant]
     Active Substance: SALICYLIC ACID
     Indication: PRODUCT USED FOR UNKNOWN INDICATION
     Dosage: 1 DOSAGE FORM, QD, DAILY
     Route: 061
     Dates: start: 202105, end: 202106

REACTIONS (1)
  - Eye allergy [Recovering/Resolving]

NARRATIVE: CASE EVENT DATE: 202105
